FAERS Safety Report 20123945 (Version 2)
Quarter: 2021Q4

REPORT INFORMATION
  Report Type: Report from Study
  Country: US (occurrence: US)
  Receive Date: 20211129
  Receipt Date: 20211201
  Transmission Date: 20220303
  Serious: Yes (Hospitalization)
  Sender: FDA-Public Use
  Company Number: US-INSMED, INC.-2021-09356-US

PATIENT
  Age: 84 Year
  Sex: Female

DRUGS (2)
  1. ARIKAYCE [Suspect]
     Active Substance: AMIKACIN
     Indication: Mycobacterium avium complex infection
     Dosage: 590 MILLIGRAM, QD
     Route: 055
     Dates: start: 20210826, end: 20210827
  2. ARIKAYCE [Suspect]
     Active Substance: AMIKACIN
     Dosage: 590 MILLIGRAM, UNK
     Route: 055
     Dates: start: 2021, end: 2021

REACTIONS (9)
  - Hospitalisation [Unknown]
  - Pneumonia [Unknown]
  - Visual impairment [Unknown]
  - Rehabilitation therapy [Unknown]
  - Off label use [Unknown]
  - Product dose omission issue [Unknown]
  - Device use issue [Unknown]
  - Drug dose omission by device [Unknown]
  - Device connection issue [Unknown]

NARRATIVE: CASE EVENT DATE: 20211001
